FAERS Safety Report 9993041 (Version 1)
Quarter: 2014Q1

REPORT INFORMATION
  Report Type: Report from Study
  Country: US (occurrence: US)
  Receive Date: 20140310
  Receipt Date: 20140310
  Transmission Date: 20141002
  Serious: No
  Sender: FDA-Public Use
  Company Number: US-ABBVIE-13P-163-1169652-00

PATIENT
  Age: 25 Year
  Sex: Female
  Weight: 66.74 kg

DRUGS (2)
  1. LUPRON DEPOT [Suspect]
     Indication: ENDOMETRIOSIS
     Route: 050
     Dates: start: 20130822
  2. NORETHINDRONE [Concomitant]
     Indication: ADJUVANT THERAPY
     Dates: start: 20130822

REACTIONS (4)
  - Miliaria [Recovered/Resolved]
  - Pruritus [Recovered/Resolved]
  - Fluid retention [Not Recovered/Not Resolved]
  - Arthralgia [Not Recovered/Not Resolved]
